FAERS Safety Report 17305228 (Version 1)
Quarter: 2020Q1

REPORT INFORMATION
  Report Type: Spontaneous
  Country: DE (occurrence: DE)
  Receive Date: 20200123
  Receipt Date: 20200123
  Transmission Date: 20200409
  Serious: Yes (Other)
  Sender: FDA-Public Use
  Company Number: DE-TEVA-2020-DE-1172904

PATIENT
  Age: 58 Year
  Sex: Male

DRUGS (1)
  1. IBU [Suspect]
     Active Substance: IBUPROFEN
     Indication: EPICONDYLITIS
     Dosage: 1600 MILLIGRAM DAILY;
     Route: 048
     Dates: start: 201912, end: 202001

REACTIONS (4)
  - Respiration abnormal [Recovering/Resolving]
  - Cough [Recovering/Resolving]
  - Productive cough [Recovering/Resolving]
  - Bronchial dysplasia [Unknown]

NARRATIVE: CASE EVENT DATE: 201912
